FAERS Safety Report 16079860 (Version 1)
Quarter: 2019Q1

REPORT INFORMATION
  Report Type: Spontaneous
  Country: CA (occurrence: CA)
  Receive Date: 20190315
  Receipt Date: 20190315
  Transmission Date: 20190418
  Serious: Yes (Hospitalization)
  Sender: FDA-Public Use
  Company Number: CA-SAMSUNG BIOEPIS-SB-2019-06040

PATIENT
  Age: 77 Year
  Sex: Male

DRUGS (1)
  1. INFLIXIMAB [Suspect]
     Active Substance: INFLIXIMAB
     Indication: COLITIS ULCERATIVE
     Route: 042

REACTIONS (8)
  - Haemophagocytic lymphohistiocytosis [Unknown]
  - Rectal tenesmus [Unknown]
  - Diarrhoea haemorrhagic [Unknown]
  - Histoplasmosis [Unknown]
  - Dyspnoea [Unknown]
  - Cytomegalovirus infection [Unknown]
  - Hypoxia [Unknown]
  - Pulmonary alveolar haemorrhage [Unknown]
